FAERS Safety Report 11269521 (Version 1)
Quarter: 2015Q3

REPORT INFORMATION
  Report Type: Spontaneous
  Country: FR (occurrence: FR)
  Receive Date: 20150714
  Receipt Date: 20150714
  Transmission Date: 20151125
  Serious: Yes (Hospitalization, Other)
  Sender: FDA-Public Use
  Company Number: FR-JNJFOC-20150706230

PATIENT

DRUGS (2)
  1. ACETAMINOPHEN. [Suspect]
     Active Substance: ACETAMINOPHEN
     Route: 065
  2. ACETAMINOPHEN. [Suspect]
     Active Substance: ACETAMINOPHEN
     Indication: PRODUCT USED FOR UNKNOWN INDICATION
     Dosage: DOSE: LESS THAN 6 GRAMS AND LESS THAN 4 GRAMS DAILY OR 16 GM OR 3.15 GM
     Route: 065

REACTIONS (3)
  - Drug administration error [Unknown]
  - Overdose [Unknown]
  - Hepatitis acute [Unknown]
